FAERS Safety Report 7927859-5 (Version None)
Quarter: 2011Q4

REPORT INFORMATION
  Report Type: 
  Country: None (occurrence: None)
  Receive Date: 20111118
  Receipt Date: 20111118
  Transmission Date: 20120403
  Serious: Yes (Hospitalization)
  Sender: FDA-Public Use
  Company Number: None

PATIENT
  Age: 53 Year
  Sex: Female
  Weight: 742.53 kg

DRUGS (9)
  1. ZOCOR [Concomitant]
  2. ZOFRAN [Concomitant]
  3. DILAUDID [Concomitant]
  4. VICTOZA [Suspect]
  5. LISINOPRIL [Concomitant]
  6. METOPROLOL TARTRATE [Concomitant]
  7. RANEXA [Concomitant]
  8. PERCOCET [Concomitant]
  9. LANTUS [Concomitant]

REACTIONS (1)
  - PANCREATITIS [None]
